FAERS Safety Report 22088394 (Version 2)
Quarter: 2023Q1

REPORT INFORMATION
  Report Type: Report from Study
  Country: US (occurrence: US)
  Receive Date: 20230313
  Receipt Date: 20230317
  Transmission Date: 20230417
  Serious: Yes (Death)
  Sender: FDA-Public Use
  Company Number: US-UCBSA-2023012531

PATIENT
  Age: 73 Year
  Sex: Male

DRUGS (1)
  1. NEUPRO [Suspect]
     Active Substance: ROTIGOTINE
     Indication: Product used for unknown indication
     Dosage: 2MG 1 PATCH DAILY
     Route: 062
     Dates: end: 20230225

REACTIONS (1)
  - Death [Fatal]

NARRATIVE: CASE EVENT DATE: 20230225
